FAERS Safety Report 25344707 (Version 1)
Quarter: 2025Q2

REPORT INFORMATION
  Report Type: Spontaneous
  Country: MA (occurrence: MA)
  Receive Date: 20250522
  Receipt Date: 20250522
  Transmission Date: 20250716
  Serious: Yes (Other)
  Sender: SANOFI AVENTIS
  Company Number: MA-SA-2025SA141727

PATIENT
  Sex: Female

DRUGS (1)
  1. CEREZYME [Suspect]
     Active Substance: IMIGLUCERASE
     Indication: Gaucher^s disease
     Route: 065

REACTIONS (7)
  - Rebound effect [Unknown]
  - Thrombocytopenia [Unknown]
  - Anaemia [Unknown]
  - Bone pain [Unknown]
  - Arthralgia [Unknown]
  - Hepatomegaly [Unknown]
  - Splenomegaly [Unknown]
